FAERS Safety Report 18834741 (Version 1)
Quarter: 2021Q1

REPORT INFORMATION
  Report Type: Spontaneous
  Country: JP (occurrence: JP)
  Receive Date: 20210203
  Receipt Date: 20210203
  Transmission Date: 20210419
  Serious: Yes (Other)
  Sender: FDA-Public Use
  Company Number: JP-ABBVIE-21K-087-3756720-00

PATIENT
  Age: 44 Year
  Sex: Male
  Weight: 65.4 kg

DRUGS (4)
  1. AVIGAN [Suspect]
     Active Substance: FAVIPIRAVIR
     Indication: COVID-19
     Route: 048
     Dates: start: 20200501, end: 20200512
  2. CICLESONIDE [Concomitant]
     Active Substance: CICLESONIDE
     Indication: PRODUCT USED FOR UNKNOWN INDICATION
     Route: 055
     Dates: start: 20200501
  3. NAFAMOSTAT [Suspect]
     Active Substance: NAFAMOSTAT
     Indication: COVID-19
     Route: 041
     Dates: start: 20200505, end: 20200509
  4. KALETRA [Suspect]
     Active Substance: LOPINAVIR\RITONAVIR
     Indication: COVID-19
     Route: 048
     Dates: end: 20200504

REACTIONS (3)
  - Drug-induced liver injury [Recovering/Resolving]
  - Oxygen saturation decreased [Unknown]
  - Off label use [Unknown]

NARRATIVE: CASE EVENT DATE: 20200503
